FAERS Safety Report 6125867-0 (Version None)
Quarter: 2009Q1

REPORT INFORMATION
  Report Type: 
  Country: None (occurrence: None)
  Receive Date: 20090320
  Receipt Date: 20090312
  Transmission Date: 20090719
  Serious: Yes (Death)
  Sender: FDA-Public Use
  Company Number: US-BIOGENIDEC-2009BI007998

PATIENT
  Age: 57 Year
  Sex: Female

DRUGS (2)
  1. AVONEX [Suspect]
     Indication: MULTIPLE SCLEROSIS
     Route: 030
     Dates: start: 19990217
  2. AVONEX [Suspect]
     Route: 030
     Dates: end: 20090112

REACTIONS (3)
  - ASTHENIA [None]
  - DEATH [None]
  - PULMONARY FUNCTION TEST DECREASED [None]
